FAERS Safety Report 4278188-5 (Version None)
Quarter: 2004Q1

REPORT INFORMATION
  Report Type: 
  Country: None (occurrence: None)
  Receive Date: 20040121
  Receipt Date: 20040109
  Transmission Date: 20041129
  Serious: No
  Sender: FDA-Public Use
  Company Number: 04P-087-0247083-00

PATIENT
  Age: 70 Year
  Sex: Male
  Weight: 66 kg

DRUGS (2)
  1. BIAXIN [Suspect]
     Dosage: 200 MG, 2 IN 1 D, PER ORAL
     Route: 048
  2. THEOPHYLLINE [Suspect]
     Dosage: PER ORAL
     Route: 048

REACTIONS (4)
  - DYSPNOEA [None]
  - FEELING COLD [None]
  - HYPOAESTHESIA [None]
  - NAUSEA [None]
